FAERS Safety Report 5618462-0 (Version None)
Quarter: 2008Q1

REPORT INFORMATION
  Report Type: 
  Country: None (occurrence: None)
  Receive Date: 20080207
  Receipt Date: 20080201
  Transmission Date: 20080703
  Serious: Yes (Life-Threatening)
  Sender: FDA-Public Use
  Company Number: A0706891A

PATIENT
  Age: 56 Year
  Sex: Female

DRUGS (8)
  1. WELLBUTRIN XL [Suspect]
     Indication: DRUG USE FOR UNKNOWN INDICATION
     Dosage: 300MG TWICE PER DAY
     Route: 048
     Dates: start: 20060601
  2. CYCLOSPORINE [Concomitant]
  3. DARVOCET [Concomitant]
  4. OXYCODONE HCL [Concomitant]
  5. HYDROCODONE BITARTRATE [Concomitant]
  6. CHOLESTYRAMINE [Concomitant]
  7. TOPAMAX [Concomitant]
  8. GABAPENTIN [Concomitant]

REACTIONS (3)
  - MEDICATION ERROR [None]
  - NO ADVERSE EVENT [None]
  - OVERDOSE [None]
